FAERS Safety Report 8532636-0 (Version None)
Quarter: 2012Q3

REPORT INFORMATION
  Report Type: 
  Country: None (occurrence: None)
  Receive Date: 20120724
  Receipt Date: 20120716
  Transmission Date: 20120928
  Serious: Yes (Hospitalization)
  Sender: FDA-Public Use
  Company Number: US-BRISTOL-MYERS SQUIBB COMPANY-16537409

PATIENT
  Age: 67 Year
  Sex: Male
  Weight: 155 kg

DRUGS (13)
  1. CARBOPLATIN [Suspect]
     Indication: NON-SMALL CELL LUNG CANCER
     Dosage: 1DF=2.25AUC LAST DOSE ON 27MAR2012
     Route: 065
     Dates: start: 20120123
  2. PEMETREXED DISODIUM [Suspect]
     Indication: NON-SMALL CELL LUNG CANCER
     Dosage: 23JAN12-12FEB12,5MAR02-5MAR2012(3654D) 188MG/M2:27MAR2012
     Route: 042
     Dates: start: 20120123
  3. TRIAMTERENE [Concomitant]
     Indication: HYPERTENSION
     Dates: start: 20111024
  4. METOPROLOL SUCCINATE [Concomitant]
     Indication: HYPERTENSION
     Dates: start: 20111024
  5. FOLIC ACID [Concomitant]
     Indication: SUPPLEMENTATION THERAPY
     Dates: start: 20120115
  6. DECADRON [Concomitant]
     Dates: start: 20120122
  7. DENOSUMAB [Concomitant]
     Indication: METASTASES TO BONE
     Dates: start: 20120116
  8. MAGNESIUM OXIDE [Concomitant]
     Indication: HYPOMAGNESAEMIA
     Dates: start: 20120306
  9. POTASSIUM CHLORIDE [Concomitant]
     Indication: HYPOKALAEMIA
     Dates: start: 20120325
  10. MIRTAZAPINE [Concomitant]
     Indication: INSOMNIA
     Dates: start: 20120120
  11. CALCIUM CARBONATE [Concomitant]
     Indication: HYPOCALCAEMIA
     Dates: start: 20120328
  12. NEULASTA [Concomitant]
     Dates: start: 20120306
  13. VITAMIN B-12 [Concomitant]
     Indication: SUPPLEMENTATION THERAPY
     Dates: start: 20120111

REACTIONS (3)
  - DEHYDRATION [None]
  - ANAEMIA [None]
  - SYNCOPE [None]
